FAERS Safety Report 17465059 (Version 1)
Quarter: 2020Q1

REPORT INFORMATION
  Report Type: Report from Study
  Country: US (occurrence: US)
  Receive Date: 20200227
  Receipt Date: 20200227
  Transmission Date: 20200409
  Serious: No
  Sender: FDA-Public Use
  Company Number: PHEH2019US015725

PATIENT
  Sex: Male
  Weight: 92.53 kg

DRUGS (1)
  1. COSENTYX [Suspect]
     Active Substance: SECUKINUMAB
     Indication: PSORIATIC ARTHROPATHY
     Dosage: 300 MG, QMO
     Route: 058
     Dates: start: 201801

REACTIONS (2)
  - Upper respiratory tract infection [Unknown]
  - Osteopenia [Unknown]

NARRATIVE: CASE EVENT DATE: 20190205
